FAERS Safety Report 10154663 (Version 1)
Quarter: 2014Q2

REPORT INFORMATION
  Report Type: Spontaneous
  Country: US (occurrence: US)
  Receive Date: 20140506
  Receipt Date: 20140506
  Transmission Date: 20141212
  Serious: Yes (Hospitalization)
  Sender: FDA-Public Use
  Company Number: US-ROCHE-1394120

PATIENT
  Sex: Male
  Weight: 104.42 kg

DRUGS (2)
  1. KLONOPIN [Suspect]
     Indication: PANIC ATTACK
     Route: 065
     Dates: end: 2014
  2. METFORMIN [Concomitant]
     Route: 065

REACTIONS (1)
  - Hypoxia [Unknown]
